FAERS Safety Report 11704333 (Version 1)
Quarter: 2015Q4

REPORT INFORMATION
  Report Type: Spontaneous
  Country: US (occurrence: US)
  Receive Date: 20151106
  Receipt Date: 20151106
  Transmission Date: 20160304
  Serious: Yes (Other)
  Sender: FDA-Public Use
  Company Number: US-CAREFUSION 213 LLC-1043841

PATIENT
  Sex: Female

DRUGS (1)
  1. CHLORAPREP WITH TINT [Suspect]
     Active Substance: CHLORHEXIDINE GLUCONATE\ISOPROPYL ALCOHOL
     Indication: PREOPERATIVE CARE
     Route: 061
     Dates: start: 20150615, end: 20150615

REACTIONS (6)
  - Chemical burn of skin [Not Recovered/Not Resolved]
  - Application site pain [Not Recovered/Not Resolved]
  - Application site scar [Not Recovered/Not Resolved]
  - Application site vesicles [Recovered/Resolved]
  - Application site burn [None]
  - Anxiety [None]

NARRATIVE: CASE EVENT DATE: 20150615
